FAERS Safety Report 17215021 (Version 1)
Quarter: 2019Q4

REPORT INFORMATION
  Report Type: Spontaneous
  Country: US (occurrence: US)
  Receive Date: 20191206
  Receipt Date: 20191206
  Transmission Date: 20200122
  Serious: Yes (Hospitalization)
  Sender: FDA-Public Use
  Company Number: None

PATIENT
  Age: 48 Year
  Sex: Male
  Weight: 100.7 kg

DRUGS (2)
  1. BEVACIZUMAB 15MG/KG IV Q21 DAYS [Suspect]
     Active Substance: BEVACIZUMAB
     Indication: GLIOBLASTOMA MULTIFORME
     Route: 042
     Dates: start: 20191024, end: 20191114
  2. NIVOLUMAB 3 MG/KG [Suspect]
     Active Substance: NIVOLUMAB
     Route: 042
     Dates: start: 20191024, end: 20191114

REACTIONS (9)
  - Alanine aminotransferase increased [None]
  - Hyperhidrosis [None]
  - Brain oedema [None]
  - Pyrexia [None]
  - Confusional state [None]
  - Ataxia [None]
  - Aspartate aminotransferase increased [None]
  - Gait disturbance [None]
  - Anaemia [None]

NARRATIVE: CASE EVENT DATE: 20191127
